FAERS Safety Report 26178007 (Version 1)
Quarter: 2025Q4

REPORT INFORMATION
  Report Type: Spontaneous
  Country: AU (occurrence: AU)
  Receive Date: 20251219
  Receipt Date: 20251219
  Transmission Date: 20260117
  Serious: Yes (Death, Other)
  Sender: AMGEN
  Company Number: AU-AMGEN-AUSSP2025249518

PATIENT

DRUGS (2)
  1. BEVACIZUMAB [Suspect]
     Active Substance: BEVACIZUMAB
     Indication: Hepatocellular carcinoma
     Dosage: UNK (AT LEAST ONE CYCLE)
     Route: 065
  2. ATEZOLIZUMAB [Suspect]
     Active Substance: ATEZOLIZUMAB
     Indication: Hepatocellular carcinoma
     Dosage: UNK (AT LEAST ONE CYCLE)
     Route: 065

REACTIONS (7)
  - Sepsis [Fatal]
  - Toxicity to various agents [Unknown]
  - Fatigue [Unknown]
  - Hepatic enzyme increased [Unknown]
  - Hypertension [Unknown]
  - Proteinuria [Unknown]
  - Off label use [Unknown]
